FAERS Safety Report 10186784 (Version 1)
Quarter: 2014Q2

REPORT INFORMATION
  Report Type: Report from Study
  Country: CL (occurrence: CL)
  Receive Date: 20140521
  Receipt Date: 20140521
  Transmission Date: 20141212
  Serious: Yes (Hospitalization)
  Sender: FDA-Public Use
  Company Number: PHHY2014CL061083

PATIENT
  Age: 26 Year
  Sex: Male

DRUGS (5)
  1. LEPONEX [Suspect]
     Indication: EPILEPSY
     Dosage: 150 MG, UNK
     Route: 048
     Dates: start: 201202
  2. LEPONEX [Suspect]
     Indication: MENTAL RETARDATION
     Dosage: 150 MG, BID
     Route: 048
  3. LEPONEX [Suspect]
     Indication: OFF LABEL USE
  4. ZYPREXA [Concomitant]
     Dosage: UNK UKN, UNK
  5. OLIVIN [Concomitant]
     Dosage: UNK UKN, UNK

REACTIONS (3)
  - Psychotic disorder [Recovered/Resolved]
  - White blood cell count decreased [Recovered/Resolved]
  - Wrong technique in drug usage process [Unknown]
